FAERS Safety Report 8161454-0 (Version None)
Quarter: 2012Q1

REPORT INFORMATION
  Report Type: 
  Country: None (occurrence: None)
  Receive Date: 20120103
  Receipt Date: 20110929
  Transmission Date: 20120608
  Serious: No
  Sender: FDA-Public Use
  Company Number: AE-2011-001920

PATIENT
  Age: 59 Year
  Sex: Male
  Weight: 77.1115 kg

DRUGS (3)
  1. PEGASYS [Concomitant]
  2. RIBAVIRIN [Concomitant]
  3. INCIVEK [Suspect]
     Dosage: 2250 MG (750 MG, 3 IN 1 D), ORAL
     Route: 048
     Dates: start: 20110708, end: 20110929

REACTIONS (5)
  - FULL BLOOD COUNT DECREASED [None]
  - PRODUCTIVE COUGH [None]
  - FREQUENT BOWEL MOVEMENTS [None]
  - DYSPNOEA [None]
  - ANAL PRURITUS [None]
